FAERS Safety Report 5677152-9 (Version None)
Quarter: 2008Q1

REPORT INFORMATION
  Report Type: 
  Country: None (occurrence: None)
  Receive Date: 20080324
  Receipt Date: 20080313
  Transmission Date: 20080703
  Serious: Yes (Hospitalization)
  Sender: FDA-Public Use
  Company Number: A0710777A

PATIENT
  Age: 54 Year
  Sex: Male

DRUGS (4)
  1. REQUIP [Suspect]
     Indication: RESTLESS LEGS SYNDROME
     Dosage: 2MG PER DAY
     Route: 048
  2. NEURONTIN [Concomitant]
  3. LEXAPRO [Concomitant]
  4. CLONAZEPAM [Concomitant]

REACTIONS (12)
  - ADVERSE EVENT [None]
  - ALCOHOL USE [None]
  - ALCOHOLISM [None]
  - CONFABULATION [None]
  - FEELING ABNORMAL [None]
  - GAMBLING [None]
  - MANIA [None]
  - NICOTINE DEPENDENCE [None]
  - OBSESSIVE-COMPULSIVE DISORDER [None]
  - PATHOLOGICAL GAMBLING [None]
  - PERSONALITY CHANGE [None]
  - THEFT [None]
